FAERS Safety Report 23117170 (Version 2)
Quarter: 2023Q4

REPORT INFORMATION
  Report Type: Spontaneous
  Country: JP (occurrence: JP)
  Receive Date: 20231027
  Receipt Date: 20231123
  Transmission Date: 20240110
  Serious: Yes (Other)
  Sender: FDA-Public Use
  Company Number: JP-JNJFOC-20231050049

PATIENT
  Age: 56 Year
  Sex: Female

DRUGS (9)
  1. VELCADE [Suspect]
     Active Substance: BORTEZOMIB
     Indication: Primary amyloidosis
     Dosage: UNK
     Route: 065
  2. VELCADE [Suspect]
     Active Substance: BORTEZOMIB
     Dosage: UNK
     Route: 065
  3. DARATUMUMAB [Suspect]
     Active Substance: DARATUMUMAB
     Indication: Primary amyloidosis
     Dosage: UNK
     Route: 058
  4. DARATUMUMAB [Suspect]
     Active Substance: DARATUMUMAB
     Dosage: UNK
     Route: 058
  5. DEXAMETHASONE [Concomitant]
     Active Substance: DEXAMETHASONE
     Indication: Primary amyloidosis
     Dosage: UNK
     Route: 065
  6. DEXAMETHASONE [Concomitant]
     Active Substance: DEXAMETHASONE
     Dosage: UNK
     Route: 065
  7. DEXAMETHASONE [Concomitant]
     Active Substance: DEXAMETHASONE
     Dosage: UNK
     Route: 065
  8. CYCLOPHOSPHAMIDE [Concomitant]
     Active Substance: CYCLOPHOSPHAMIDE
     Indication: Primary amyloidosis
     Dosage: UNK
     Route: 065
  9. LENALIDOMIDE [Concomitant]
     Active Substance: LENALIDOMIDE
     Indication: Primary amyloidosis
     Dosage: UNK
     Route: 048

REACTIONS (1)
  - Therapeutic product effect incomplete [Unknown]
